FAERS Safety Report 4378446-X (Version None)
Quarter: 2004Q2

REPORT INFORMATION
  Report Type: 
  Country: None (occurrence: None)
  Receive Date: 20040609
  Receipt Date: 20040525
  Transmission Date: 20050107
  Serious: Yes (Other)
  Sender: FDA-Public Use
  Company Number: 2004216001GR

PATIENT
  Sex: Male

DRUGS (7)
  1. METHOTREXATE [Suspect]
     Indication: B PRECURSOR TYPE ACUTE LEUKAEMIA
     Dosage: CYCLIC, INTRATHECAL
     Route: 037
  2. SOLU-CORTEF [Suspect]
     Indication: B PRECURSOR TYPE ACUTE LEUKAEMIA
     Dosage: CYCLIC, INTRATHECAL
     Route: 037
  3. CYTARABINE [Suspect]
     Indication: B PRECURSOR TYPE ACUTE LEUKAEMIA
     Dosage: CYCLIC, INTRATHECAL
     Route: 037
  4. DEXAMETHESONE [Concomitant]
  5. VINCRISTINE [Concomitant]
  6. METHOTREXATE [Concomitant]
  7. MERCAPTOPURINE [Concomitant]

REACTIONS (6)
  - BETA-N-ACETYL-D-GLUCOSAMINIDASE ABNORMAL [None]
  - DRUG INTERACTION [None]
  - HEADACHE [None]
  - NEUROTOXICITY [None]
  - SUBDURAL HYGROMA [None]
  - VOMITING [None]
